FAERS Safety Report 15222052 (Version 1)
Quarter: 2018Q3

REPORT INFORMATION
  Report Type: Spontaneous
  Country: HU (occurrence: HU)
  Receive Date: 20180731
  Receipt Date: 20180731
  Transmission Date: 20181010
  Serious: Yes (Hospitalization)
  Sender: FDA-Public Use
  Company Number: HU-TEVA-690369ISR

PATIENT
  Age: 62 Year
  Sex: Male
  Weight: 102 kg

DRUGS (14)
  1. VENTOLIN [Concomitant]
     Active Substance: ALBUTEROL SULFATE
     Dates: start: 20160513
  2. KALDYUM [Concomitant]
     Active Substance: POTASSIUM CHLORIDE
     Dates: start: 20160513
  3. PORTIRON [Concomitant]
     Dates: start: 20160718
  4. ASPIRIN. [Concomitant]
     Active Substance: ASPIRIN
     Dates: start: 20160513
  5. DIGIMERCK MINOR [Concomitant]
     Active Substance: DIGITOXIN
     Dates: start: 20160513
  6. SPIOLTO RESPIMAT [Concomitant]
     Active Substance: OLODATEROL HYDROCHLORIDE\TIOTROPIUM BROMIDE MONOHYDRATE
     Dates: start: 20160513
  7. PANTOPRAZOL [Concomitant]
     Active Substance: PANTOPRAZOLE SODIUM
     Dates: start: 20160513
  8. VEROSPIRON [Concomitant]
     Active Substance: SPIRONOLACTONE
     Dates: start: 20160513
  9. CARBOPLATIN. [Suspect]
     Active Substance: CARBOPLATIN
     Indication: NON-SMALL CELL LUNG CANCER
     Dosage: 787MG, EVERY 21 DAYS, INFUSION
     Route: 042
     Dates: start: 20160726, end: 20160831
  10. BISOPROLOL [Concomitant]
     Active Substance: BISOPROLOL
     Dates: start: 20160513
  11. PF?06439535;AVASTIN(EU)(CODE NOT BROKEN) [Concomitant]
     Indication: NON-SMALL CELL LUNG CANCER
     Dosage: 1530MG, EVERY 21 DAYS, INFUSION
     Route: 042
     Dates: start: 20160726
  12. FURON [Concomitant]
     Active Substance: FUROSEMIDE
     Dates: start: 20160513
  13. PACLITAXEL. [Suspect]
     Active Substance: PACLITAXEL
     Indication: NON-SMALL CELL LUNG CANCER
     Dosage: 420MG EVERY 21 DAYS, INFUSION
     Route: 042
     Dates: start: 20160726, end: 20160831
  14. ROXERA [Concomitant]
     Dates: start: 20160513

REACTIONS (1)
  - Febrile neutropenia [Recovered/Resolved]

NARRATIVE: CASE EVENT DATE: 20160802
